FAERS Safety Report 8371217-9 (Version None)
Quarter: 2012Q2

REPORT INFORMATION
  Report Type: 
  Country: None (occurrence: None)
  Receive Date: 20120518
  Receipt Date: 20120509
  Transmission Date: 20120825
  Serious: Yes (Other)
  Sender: FDA-Public Use
  Company Number: US-ACTELION-A-US2012-65150

PATIENT

DRUGS (4)
  1. VENTAVIS [Suspect]
     Indication: PULMONARY ARTERIAL HYPERTENSION
     Dosage: UNK
     Route: 055
     Dates: start: 20120412
  2. CALCIUM CHANNEL BLOCKERS [Concomitant]
  3. ACE INHIBITORS [Concomitant]
  4. LETAIRIS [Suspect]

REACTIONS (9)
  - PRURITUS [None]
  - THROAT IRRITATION [None]
  - OROPHARYNGEAL PAIN [None]
  - SENSATION OF FOREIGN BODY [None]
  - HEADACHE [None]
  - NAUSEA [None]
  - FLUSHING [None]
  - PULMONARY OEDEMA [None]
  - DYSPHAGIA [None]
